FAERS Safety Report 9695253 (Version 1)
Quarter: 2013Q4

REPORT INFORMATION
  Report Type: Report from Study
  Country: NO (occurrence: NO)
  Receive Date: 20131119
  Receipt Date: 20131119
  Transmission Date: 20140711
  Serious: Yes (Other)
  Sender: FDA-Public Use
  Company Number: NO-BAYER-2013-138597

PATIENT
  Sex: Female
  Weight: 83 kg

DRUGS (1)
  1. MIRENA [Suspect]
     Indication: CONTRACEPTION
     Dosage: 20 MCG/24HR, CONT
     Route: 015
     Dates: end: 20131107

REACTIONS (6)
  - Device dislocation [None]
  - Vulvovaginal pruritus [None]
  - Vulvovaginal pain [None]
  - Vaginal laceration [None]
  - Eczema [None]
  - Scar [None]
